FAERS Safety Report 7700318-0 (Version None)
Quarter: 2011Q3

REPORT INFORMATION
  Report Type: 
  Country: None (occurrence: None)
  Receive Date: 20110822
  Receipt Date: 20110812
  Transmission Date: 20111222
  Serious: Yes (Hospitalization)
  Sender: FDA-Public Use
  Company Number: PHHO2011US13978

PATIENT
  Sex: Female
  Weight: 51.8 kg

DRUGS (2)
  1. AFINITOR [Suspect]
     Indication: NEOPLASM MALIGNANT
     Dosage: 10 MG, UNK
     Route: 048
     Dates: start: 20110727, end: 20110811
  2. LENALIDOMIDE [Suspect]
     Indication: SALIVARY GLAND CANCER
     Dosage: 25 MG, UNK
     Route: 048
     Dates: start: 20110727, end: 20110811

REACTIONS (1)
  - ACUTE MYOCARDIAL INFARCTION [None]
